FAERS Safety Report 8987711 (Version 2)
Quarter: 2014Q2

REPORT INFORMATION
  Report Type: Spontaneous
  Country: US (occurrence: US)
  Receive Date: 20121227
  Receipt Date: 20131024
  Transmission Date: 20141212
  Serious: No
  Sender: FDA-Public Use
  Company Number: US-PFIZER INC-2012326926

PATIENT
  Age: 54 Year
  Sex: Female
  Weight: 86.2 kg

DRUGS (8)
  1. PREMPRO [Suspect]
     Indication: MENOPAUSE
     Dosage: 0.3/1.5 MG, DAILY
     Dates: start: 20121218
  2. PREMPHASE [Suspect]
     Indication: MENOPAUSE
     Dosage: UNK
  3. ABILIFY [Concomitant]
     Dosage: UNK
  4. BENADRYL [Concomitant]
     Dosage: UNK
  5. XANAX [Concomitant]
     Indication: INSOMNIA
     Dosage: UNK, 2X/DAY
  6. XANAX [Concomitant]
     Indication: ANXIETY
  7. GEODON [Concomitant]
     Dosage: UNK
  8. NEURONTIN [Concomitant]
     Dosage: UNK

REACTIONS (1)
  - Insomnia [Unknown]
